FAERS Safety Report 9915024 (Version 1)
Quarter: 2014Q1

REPORT INFORMATION
  Report Type: Spontaneous
  Country: CA (occurrence: CA)
  Receive Date: 20140220
  Receipt Date: 20140220
  Transmission Date: 20141002
  Serious: Yes (Other)
  Sender: FDA-Public Use
  Company Number: PHHY2014CA021057

PATIENT
  Sex: Female

DRUGS (13)
  1. RITALIN [Suspect]
     Dosage: UNK UKN, UNK
  2. ZOPICLONE [Suspect]
     Dosage: UNK UKN, UNK
  3. RITUXAN [Suspect]
     Indication: RHEUMATOID ARTHRITIS
     Dosage: 1000 MG, UNK
     Dates: start: 20110512
  4. DETROL [Suspect]
     Indication: BLADDER DISORDER
     Dosage: UNK UKN, UNK
  5. ADVAIR [Concomitant]
     Dosage: UNK UKN, UNK
  6. PREDNISONE [Concomitant]
     Dosage: UNK UKN, UNK
  7. SIMVASTATIN [Concomitant]
     Dosage: UNK UKN, UNK
  8. AMLODIPINE [Concomitant]
     Dosage: UNK UKN, UNK
  9. ZENHALE [Concomitant]
     Dosage: UNK UKN, UNK
  10. TECTA [Concomitant]
     Dosage: UNK UKN, UNK
  11. CYMBALTA [Concomitant]
     Dosage: UNK UKN, UNK
  12. PROLIA [Concomitant]
     Dosage: UNK UKN, EVERY 6 MONTHS
  13. MONTELUCAST [Concomitant]
     Indication: LUNG DISORDER
     Dosage: UNK UKN, UNK

REACTIONS (4)
  - Buttock crushing [Unknown]
  - Confusional state [Unknown]
  - Balance disorder [Unknown]
  - Nasopharyngitis [Unknown]
